FAERS Safety Report 7007761-6 (Version None)
Quarter: 2010Q3

REPORT INFORMATION
  Report Type: 
  Country: None (occurrence: None)
  Receive Date: 20100920
  Receipt Date: 20100901
  Transmission Date: 20110219
  Serious: Yes (Hospitalization, Other)
  Sender: FDA-Public Use
  Company Number: JPI-P-012103

PATIENT
  Age: 59 Year
  Sex: Female

DRUGS (2)
  1. XYREM [Suspect]
     Indication: NARCOLEPSY
     Dosage: 4.5 GM (2.25 GM, 2 IN 1 D) ORAL; 5.5 GM (2.75 GM, 2 IN 1 D) ORAL
     Route: 048
     Dates: start: 20060717, end: 20090212
  2. XYREM [Suspect]
     Indication: NARCOLEPSY
     Dosage: 4.5 GM (2.25 GM, 2 IN 1 D) ORAL; 5.5 GM (2.75 GM, 2 IN 1 D) ORAL
     Route: 048
     Dates: start: 20090213

REACTIONS (6)
  - CONSTIPATION [None]
  - DEAFNESS [None]
  - DYSKINESIA [None]
  - INSOMNIA [None]
  - SOMNAMBULISM [None]
  - SPINAL FUSION SURGERY [None]
